FAERS Safety Report 14607144 (Version 4)
Quarter: 2018Q3

REPORT INFORMATION
  Report Type: Spontaneous
  Country: US (occurrence: US)
  Receive Date: 20180307
  Receipt Date: 20180702
  Transmission Date: 20181010
  Serious: Yes (Other)
  Sender: FDA-Public Use
  Company Number: US-JNJFOC-20180305270

PATIENT
  Age: 84 Year
  Sex: Male

DRUGS (20)
  1. IMBRUVICA [Suspect]
     Active Substance: IBRUTINIB
     Indication: B-CELL LYMPHOMA
     Route: 048
     Dates: end: 201802
  2. VITAMIN K NOS [Concomitant]
     Active Substance: DIETARY SUPPLEMENT\ MENAQUINONE 6\PHYTONADIONE
  3. ZOLPIDEM [Concomitant]
     Active Substance: ZOLPIDEM\ZOLPIDEM TARTRATE
  4. ALLOPURINOL. [Concomitant]
     Active Substance: ALLOPURINOL
  5. IMBRUVICA [Suspect]
     Active Substance: IBRUTINIB
     Indication: CHRONIC LYMPHOCYTIC LEUKAEMIA
     Route: 048
     Dates: start: 20171208, end: 20180119
  6. FUROSEMIDE. [Concomitant]
     Active Substance: FUROSEMIDE
  7. TUMS [Concomitant]
     Active Substance: CALCIUM CARBONATE
  8. PHOSPHORUS [Concomitant]
     Active Substance: PHOSPHORUS
  9. IMBRUVICA [Suspect]
     Active Substance: IBRUTINIB
     Indication: B-CELL LYMPHOMA
     Route: 048
     Dates: start: 20171208, end: 20180119
  10. ASPIRIN. [Concomitant]
     Active Substance: ASPIRIN
     Dates: start: 20180522
  11. VITAMIN D [Concomitant]
     Active Substance: CHOLECALCIFEROL
  12. CARVEDILOL. [Concomitant]
     Active Substance: CARVEDILOL
  13. VITAMIN D3 [Concomitant]
     Active Substance: CHOLECALCIFEROL
  14. METFORMIN [Concomitant]
     Active Substance: METFORMIN HYDROCHLORIDE
  15. MULTIVITAMINS [Concomitant]
     Active Substance: VITAMINS
  16. POTASSIUM CHLORIDE. [Concomitant]
     Active Substance: POTASSIUM CHLORIDE
  17. COQ10 [Concomitant]
     Active Substance: UBIDECARENONE
  18. SIMVASTATIN. [Concomitant]
     Active Substance: SIMVASTATIN
     Indication: BLOOD CHOLESTEROL ABNORMAL
  19. IMBRUVICA [Suspect]
     Active Substance: IBRUTINIB
     Indication: CHRONIC LYMPHOCYTIC LEUKAEMIA
     Route: 048
     Dates: end: 201802
  20. IRON [Concomitant]
     Active Substance: IRON

REACTIONS (6)
  - Weight decreased [Not Recovered/Not Resolved]
  - Pleural effusion [Unknown]
  - Pericardial effusion [Not Recovered/Not Resolved]
  - Decreased appetite [Not Recovered/Not Resolved]
  - Pulmonary oedema [Unknown]
  - White blood cell count abnormal [Not Recovered/Not Resolved]

NARRATIVE: CASE EVENT DATE: 201802
